FAERS Safety Report 5850284-8 (Version None)
Quarter: 2008Q3

REPORT INFORMATION
  Report Type: 
  Country: None (occurrence: None)
  Receive Date: 20080731
  Receipt Date: 20080408
  Transmission Date: 20090109
  Serious: No
  Sender: FDA-Public Use
  Company Number: US200804001986

PATIENT
  Age: 45 Year
  Sex: Female
  Weight: 93.9 kg

DRUGS (9)
  1. BYETTA [Suspect]
     Indication: TYPE 2 DIABETES MELLITUS
     Dosage: 5 UG, 2/D, SUBCUTANEOUS
     Route: 058
     Dates: start: 20080201
  2. GLUCOPHAGE /USA/ (METFORMIN HYDROCHLORIDE) [Concomitant]
  3. GLIPIZIDE [Concomitant]
  4. IBUPROFEN [Concomitant]
  5. ACETAMINOPHEN [Concomitant]
  6. VYTORIN [Concomitant]
  7. ANAPRIL (ENALAPRIL MALEATE) [Concomitant]
  8. EFFEXOR [Concomitant]
  9. GABAPENTIN [Concomitant]

REACTIONS (7)
  - ABDOMINAL PAIN UPPER [None]
  - DECREASED APPETITE [None]
  - DIARRHOEA [None]
  - FATIGUE [None]
  - NAUSEA [None]
  - POOR QUALITY SLEEP [None]
  - WEIGHT DECREASED [None]
